FAERS Safety Report 10178127 (Version 1)
Quarter: 2014Q2

REPORT INFORMATION
  Report Type: Spontaneous
  Country: US (occurrence: US)
  Receive Date: 20140519
  Receipt Date: 20140519
  Transmission Date: 20141212
  Serious: Yes (Other)
  Sender: FDA-Public Use
  Company Number: PHHY2014US058097

PATIENT
  Age: 29 Year
  Sex: Female

DRUGS (2)
  1. LEVETIRACETAM [Suspect]
     Indication: IDIOPATHIC GENERALISED EPILEPSY
     Dosage: 500 MG, BID
  2. LEVETIRACETAM [Suspect]
     Dosage: 100 MG, BID

REACTIONS (4)
  - Idiopathic generalised epilepsy [Recovered/Resolved]
  - Convulsion [Recovered/Resolved]
  - Condition aggravated [Recovered/Resolved]
  - Maternal exposure during pregnancy [Unknown]
